FAERS Safety Report 6307040-6 (Version None)
Quarter: 2009Q3

REPORT INFORMATION
  Report Type: 
  Country: None (occurrence: None)
  Receive Date: 20090812
  Receipt Date: 20090805
  Transmission Date: 20100115
  Serious: Yes (Hospitalization, Other)
  Sender: FDA-Public Use
  Company Number: PHHY2009MX31400

PATIENT
  Sex: Female

DRUGS (2)
  1. DIOVAN HCT [Suspect]
     Indication: HYPERTENSION
     Dosage: 160/25 MG 1 TABLET / DAY
     Route: 048
     Dates: start: 20060601, end: 20090708
  2. DIOVAN HCT [Suspect]
     Dosage: 160/25 MG, 1 TABLET DAILY
     Dates: start: 20090731

REACTIONS (4)
  - ABDOMINAL PAIN UPPER [None]
  - CHOLELITHIASIS [None]
  - GALLBLADDER OPERATION [None]
  - PANCREATITIS [None]
